FAERS Safety Report 4301975-1 (Version None)
Quarter: 2004Q1

REPORT INFORMATION
  Report Type: 
  Country: None (occurrence: None)
  Receive Date: 20040220
  Receipt Date: 20040210
  Transmission Date: 20041129
  Serious: Yes (Hospitalization)
  Sender: FDA-Public Use
  Company Number: 2004UW02662

PATIENT
  Age: 80 Year
  Sex: Female

DRUGS (8)
  1. CRESTOR [Suspect]
     Indication: BLOOD CHOLESTEROL INCREASED
     Dosage: 10 MG QD PO
     Route: 048
     Dates: start: 20040107
  2. LOSEC [Concomitant]
  3. HYZAAR [Concomitant]
  4. TENORMIN [Concomitant]
  5. IMDUR [Concomitant]
  6. DIABETA [Concomitant]
  7. ATIVAN [Concomitant]
  8. HUMALOG [Concomitant]

REACTIONS (3)
  - CEREBROVASCULAR ACCIDENT [None]
  - MUSCULAR WEAKNESS [None]
  - MYALGIA [None]
